FAERS Safety Report 4864073-4 (Version None)
Quarter: 2005Q4

REPORT INFORMATION
  Report Type: 
  Country: None (occurrence: None)
  Receive Date: 20051219
  Receipt Date: 20051219
  Transmission Date: 20060501
  Serious: Yes (Life-Threatening, Hospitalization)
  Sender: FDA-Public Use
  Company Number: None

PATIENT
  Age: 59 Year
  Sex: Female

DRUGS (2)
  1. ZIPRAZADONE [Suspect]
     Indication: BIPOLAR DISORDER
     Dosage: 60 MG TWICE DAILY PO
     Route: 048
  2. LEXAPRO [Suspect]
     Indication: DEPRESSION
     Dosage: 10 MG DAILY PO
     Route: 048

REACTIONS (2)
  - ANXIETY [None]
  - NEUROLEPTIC MALIGNANT SYNDROME [None]
